FAERS Safety Report 9368529 (Version 1)
Quarter: 2013Q2

REPORT INFORMATION
  Report Type: Spontaneous
  Country: GB (occurrence: GB)
  Receive Date: 20130625
  Receipt Date: 20130625
  Transmission Date: 20140414
  Serious: Yes (Other)
  Sender: FDA-Public Use
  Company Number: GB-PFIZER INC-2013188262

PATIENT
  Age: 15 Year
  Sex: Male

DRUGS (2)
  1. EPANUTIN [Suspect]
     Dosage: 9 MG, UNK
  2. EPANUTIN [Suspect]
     Dosage: 13.5 MG, UNK

REACTIONS (3)
  - Aggression [Unknown]
  - Head banging [Unknown]
  - Anticonvulsant drug level below therapeutic [Unknown]
